FAERS Safety Report 8206515-2 (Version None)
Quarter: 2012Q1

REPORT INFORMATION
  Report Type: 
  Country: None (occurrence: None)
  Receive Date: 20120313
  Receipt Date: 20120227
  Transmission Date: 20120608
  Serious: Yes (Other)
  Sender: FDA-Public Use
  Company Number: CA-WATSON-2012-04223

PATIENT
  Age: 41 Year
  Sex: Male

DRUGS (3)
  1. VALPROATE SODIUM [Suspect]
     Dosage: 2000 MG, DAILY
     Route: 065
  2. ERTAPENEM [Suspect]
  3. VALPROATE SODIUM [Suspect]
     Indication: EPILEPSY
     Dosage: 2750 MG, DAILY (SUBSEQUENT)
     Route: 065

REACTIONS (3)
  - CONVULSION [None]
  - DRUG LEVEL DECREASED [None]
  - DRUG INTERACTION [None]
